FAERS Safety Report 10240457 (Version 1)
Quarter: 2014Q2

REPORT INFORMATION
  Report Type: Spontaneous
  Country: US (occurrence: US)
  Receive Date: 20140617
  Receipt Date: 20140617
  Transmission Date: 20141212
  Serious: No
  Sender: FDA-Public Use
  Company Number: US-ASTRAZENECA-2014SE40008

PATIENT
  Age: 43 Year
  Sex: Male

DRUGS (4)
  1. BRILINTA [Suspect]
     Indication: STENT PLACEMENT
     Route: 048
  2. STATIN (NAME NOT PROVIDED) [Concomitant]
     Dosage: NR DAILY
  3. METIOPROLOL [Concomitant]
  4. BABY ASPIRIN [Concomitant]
     Dosage: NR DAILY

REACTIONS (3)
  - Peripheral coldness [Unknown]
  - Anxiety [Unknown]
  - Dizziness [Unknown]
